FAERS Safety Report 6159517-4 (Version None)
Quarter: 2009Q2

REPORT INFORMATION
  Report Type: 
  Country: None (occurrence: None)
  Receive Date: 20090420
  Receipt Date: 20081112
  Transmission Date: 20091009
  Serious: No
  Sender: FDA-Public Use
  Company Number: US-ABBOTT-08P-163-0462041-00

PATIENT
  Sex: Female
  Weight: 35.9 kg

DRUGS (1)
  1. LUPRON DEPOT-PED [Suspect]
     Indication: PRECOCIOUS PUBERTY
     Dosage: T
     Route: 030
     Dates: start: 20080320

REACTIONS (3)
  - INJECTION SITE NODULE [None]
  - PAIN [None]
  - PYREXIA [None]
